FAERS Safety Report 10264182 (Version 1)
Quarter: 2014Q2

REPORT INFORMATION
  Report Type: Spontaneous
  Country: US (occurrence: None)
  Receive Date: 20140623
  Receipt Date: 20140623
  Transmission Date: 20141212
  Serious: Yes (Disabling)
  Sender: FDA-Public Use
  Company Number: None

PATIENT
  Age: 69 Year
  Sex: Female
  Weight: 44 kg

DRUGS (1)
  1. MOVIPREP [Suspect]
     Indication: COLONOSCOPY
     Dosage: 64 OUNCES, 1 DAY PREP, TAKEN BY MOUTH
     Route: 048
     Dates: start: 20140302, end: 20140302

REACTIONS (4)
  - Diarrhoea [None]
  - Weight decreased [None]
  - Decreased appetite [None]
  - Ageusia [None]
